FAERS Safety Report 10227245 (Version 1)
Quarter: 2014Q2

REPORT INFORMATION
  Report Type: Spontaneous
  Country: CN (occurrence: None)
  Receive Date: 20140606
  Receipt Date: 20140606
  Transmission Date: 20141212
  Serious: Yes (Other)
  Sender: FDA-Public Use
  Company Number: FK201402079

PATIENT
  Age: 61 Year
  Sex: Male

DRUGS (1)
  1. INTRALIPID 20% [Suspect]
     Indication: NUTRITIONAL SUPPLEMENTATION
     Route: 041
     Dates: start: 20130822, end: 20130822

REACTIONS (3)
  - Temperature intolerance [None]
  - Chills [None]
  - Pyrexia [None]
